FAERS Safety Report 14513847 (Version 1)
Quarter: 2018Q1

REPORT INFORMATION
  Report Type: Spontaneous
  Country: US (occurrence: US)
  Receive Date: 20180209
  Receipt Date: 20180209
  Transmission Date: 20180509
  Serious: No
  Sender: FDA-Public Use
  Company Number: US-ALLERGAN-1758400US

PATIENT
  Sex: Female

DRUGS (2)
  1. RESTASIS [Suspect]
     Active Substance: CYCLOSPORINE
     Indication: DRY EYE
     Dosage: 2 GTT, BID
     Route: 047
     Dates: start: 20170621
  2. RESTASIS [Suspect]
     Active Substance: CYCLOSPORINE
     Indication: CORNEAL EROSION

REACTIONS (4)
  - Rash [Recovering/Resolving]
  - Lacrimation increased [Recovering/Resolving]
  - Vision blurred [Not Recovered/Not Resolved]
  - Eye swelling [Recovered/Resolved]
